FAERS Safety Report 23873793 (Version 1)
Quarter: 2024Q2

REPORT INFORMATION
  Report Type: Spontaneous
  Country: IN (occurrence: IN)
  Receive Date: 20240520
  Receipt Date: 20240520
  Transmission Date: 20240716
  Serious: Yes (Other)
  Sender: FDA-Public Use
  Company Number: IN-PFIZER INC-PV202400064127

PATIENT
  Age: 80 Year
  Sex: Female

DRUGS (4)
  1. PALBOCICLIB [Suspect]
     Active Substance: PALBOCICLIB
     Indication: Breast cancer
     Dosage: 100 MG, 1X/DAY
     Route: 048
     Dates: start: 20220905
  2. PALBOCICLIB [Suspect]
     Active Substance: PALBOCICLIB
     Dosage: 75 MG, 1X/DAY (ON 75 MG SINCE C6)
     Route: 048
  3. LETROZOLE [Concomitant]
     Active Substance: LETROZOLE
     Dosage: 2.5 MG, 1X/DAY (1-0-0)
     Dates: start: 20220902
  4. CALCIUM\CHOLECALCIFEROL [Concomitant]
     Active Substance: CALCIUM\CHOLECALCIFEROL
     Dosage: UNK
     Dates: start: 20220902

REACTIONS (9)
  - Spinal compression fracture [Recovering/Resolving]
  - Fall [Recovering/Resolving]
  - Blood urea increased [Recovering/Resolving]
  - Neutrophil count decreased [Recovered/Resolved]
  - Blood sodium decreased [Unknown]
  - Aspartate aminotransferase increased [Unknown]
  - Blood alkaline phosphatase decreased [Unknown]
  - Blood glucose increased [Unknown]
  - Vitamin D decreased [Unknown]

NARRATIVE: CASE EVENT DATE: 20220917
